FAERS Safety Report 23210608 (Version 1)
Quarter: 2023Q4

REPORT INFORMATION
  Report Type: Spontaneous
  Country: CN (occurrence: CN)
  Receive Date: 20231121
  Receipt Date: 20231121
  Transmission Date: 20240109
  Serious: Yes (Hospitalization)
  Sender: FDA-Public Use
  Company Number: CN-002147023-NVSC2023CN243365

PATIENT
  Age: 85 Year
  Sex: Female
  Weight: 44 kg

DRUGS (1)
  1. SACUBITRIL\VALSARTAN [Suspect]
     Active Substance: SACUBITRIL\VALSARTAN
     Indication: Hypertension
     Dosage: 50 MG, BID
     Route: 048
     Dates: start: 20231016, end: 20231022

REACTIONS (8)
  - Blood potassium increased [Recovering/Resolving]
  - Heart rate increased [Unknown]
  - Blood pressure increased [Unknown]
  - Mental status changes [Unknown]
  - Rales [Unknown]
  - Arrhythmia [Unknown]
  - Extrasystoles [Unknown]
  - Oedema [Unknown]

NARRATIVE: CASE EVENT DATE: 20231022
